FAERS Safety Report 6601833-3 (Version None)
Quarter: 2010Q1

REPORT INFORMATION
  Report Type: 
  Country: None (occurrence: None)
  Receive Date: 20100218
  Receipt Date: 20100206
  Transmission Date: 20100710
  Serious: Yes (Hospitalization)
  Sender: FDA-Public Use
  Company Number: 2010AP000272

PATIENT
  Sex: Male

DRUGS (4)
  1. PREDNISOLONE [Suspect]
     Dosage: 10 MG;QD ; 25 MG;QD
  2. MYCOPHENOLATE SODIUM (MYCOPHENOLATE SODIUM) [Suspect]
     Dosage: 720 MG;BID
  3. CYCLOSPORINE [Suspect]
  4. BASILIXIMAB (BASILIXIMAB) [Suspect]
     Dosage: 20 MG

REACTIONS (17)
  - BAND NEUTROPHIL PERCENTAGE INCREASED [None]
  - ERYTHEMA [None]
  - HAEMODIALYSIS [None]
  - HAEMOGLOBIN DECREASED [None]
  - KIDNEY TRANSPLANT REJECTION [None]
  - LYMPHOCYTE PERCENTAGE DECREASED [None]
  - MALAISE [None]
  - MUMPS [None]
  - MYALGIA [None]
  - NEURITIS [None]
  - OEDEMA [None]
  - ORCHITIS [None]
  - PERIVASCULAR DERMATITIS [None]
  - PYREXIA [None]
  - RENAL IMPAIRMENT [None]
  - SWELLING FACE [None]
  - TUBULOINTERSTITIAL NEPHRITIS [None]
